FAERS Safety Report 7650060-X (Version None)
Quarter: 2011Q3

REPORT INFORMATION
  Report Type: 
  Country: None (occurrence: None)
  Receive Date: 20110802
  Receipt Date: 20110802
  Transmission Date: 20111222
  Serious: Yes (Hospitalization)
  Sender: FDA-Public Use
  Company Number: None

PATIENT
  Sex: Female
  Weight: 46.72 kg

DRUGS (1)
  1. LOESTRIN FE 1/20 [Suspect]
     Indication: MENOPAUSAL SYMPTOMS
     Dosage: 1
     Route: 048
     Dates: start: 20100501, end: 20101206

REACTIONS (3)
  - SUPERIOR SAGITTAL SINUS THROMBOSIS [None]
  - HEADACHE [None]
  - CEREBRAL THROMBOSIS [None]
